FAERS Safety Report 20686029 (Version 1)
Quarter: 2022Q2

REPORT INFORMATION
  Report Type: Spontaneous
  Country: US (occurrence: US)
  Receive Date: 20220407
  Receipt Date: 20220407
  Transmission Date: 20220721
  Serious: No
  Sender: FDA-Public Use
  Company Number: US-JAZZ-2021-US-019715

PATIENT
  Age: 21 Year
  Sex: Female

DRUGS (4)
  1. SUNOSI [Suspect]
     Active Substance: SOLRIAMFETOL
     Indication: Narcolepsy
     Dosage: 150 MILLIGRAM, QD
     Route: 048
     Dates: start: 20191202
  2. SUNOSI [Suspect]
     Active Substance: SOLRIAMFETOL
     Dosage: UNKNOWN DOSE AND FREQUENCY
     Route: 048
     Dates: start: 202107
  3. SUNOSI [Suspect]
     Active Substance: SOLRIAMFETOL
     Dosage: UNKNOWN DOSE AND FREQUENCY
     Route: 048
     Dates: start: 202108
  4. SUNOSI [Suspect]
     Active Substance: SOLRIAMFETOL
     Dosage: UNKNOWN DOSE AND FREQUENCY
     Route: 048
     Dates: start: 202109

REACTIONS (2)
  - Pre-existing condition improved [Unknown]
  - Therapeutic response unexpected [Unknown]

NARRATIVE: CASE EVENT DATE: 20191201
